FAERS Safety Report 25840577 (Version 1)
Quarter: 2025Q3

REPORT INFORMATION
  Report Type: Spontaneous
  Country: US (occurrence: None)
  Receive Date: 20250923
  Receipt Date: 20250923
  Transmission Date: 20251021
  Serious: No
  Sender: FDA-CTU
  Company Number: None

PATIENT
  Age: 64 Year
  Sex: Male
  Weight: 112.94 kg

DRUGS (1)
  1. AUSTEDO XR [Suspect]
     Active Substance: DEUTETRABENAZINE
     Indication: Tardive dyskinesia
     Dosage: 12 MG DAILY ORAL ?
     Route: 048
     Dates: start: 20250702, end: 20250821

REACTIONS (1)
  - Therapy change [None]

NARRATIVE: CASE EVENT DATE: 20250821
